FAERS Safety Report 7685467-8 (Version None)
Quarter: 2011Q3

REPORT INFORMATION
  Report Type: 
  Country: None (occurrence: None)
  Receive Date: 20110816
  Receipt Date: 20110804
  Transmission Date: 20111222
  Serious: Yes (Hospitalization)
  Sender: FDA-Public Use
  Company Number: FR-JNJFOC-20110806086

PATIENT
  Sex: Female

DRUGS (4)
  1. TRAMADOL HCL [Suspect]
     Indication: PAIN
     Route: 048
     Dates: end: 20110315
  2. TRAMADOL HCL [Suspect]
     Route: 048
     Dates: start: 20110322
  3. ACETAMINOPHEN [Concomitant]
     Indication: PAIN
     Route: 048
     Dates: start: 20110322
  4. ACETAMINOPHEN [Concomitant]
     Route: 048
     Dates: end: 20110315

REACTIONS (2)
  - PANCREATITIS ACUTE [None]
  - OVERDOSE [None]
